FAERS Safety Report 9290358 (Version 2)
Quarter: 2013Q2

REPORT INFORMATION
  Report Type: Spontaneous
  Country: IT (occurrence: IT)
  Receive Date: 20130515
  Receipt Date: 20130625
  Transmission Date: 20140414
  Serious: Yes (Hospitalization)
  Sender: FDA-Public Use
  Company Number: IT-PFIZER INC-2013149467

PATIENT
  Age: 48 Year
  Sex: Female

DRUGS (2)
  1. ALPRAZOLAM [Suspect]
     Dosage: 5 MG, SINGLE
     Route: 048
     Dates: start: 20130506, end: 20130506
  2. EN [Suspect]
     Dosage: 40 ML, SINGLE
     Route: 048
     Dates: start: 20130506, end: 20130506

REACTIONS (2)
  - Intentional self-injury [Recovering/Resolving]
  - Headache [Recovering/Resolving]
